FAERS Safety Report 20530088 (Version 1)
Quarter: 2022Q1

REPORT INFORMATION
  Report Type: Spontaneous
  Country: None (occurrence: CN)
  Receive Date: 20220301
  Receipt Date: 20220301
  Transmission Date: 20220423
  Serious: Yes (Other)
  Sender: FDA-Public Use
  Company Number: CN-Jiangsu Hengrui Medicine Co., Ltd.-2126313

PATIENT
  Age: 72 Year
  Sex: Male
  Weight: 55 kg

DRUGS (5)
  1. GABAPENTIN [Suspect]
     Active Substance: GABAPENTIN
     Indication: Arthralgia
     Route: 048
     Dates: start: 20220210, end: 20220210
  2. CELECOXIB [Suspect]
     Active Substance: CELECOXIB
     Route: 048
     Dates: start: 20220208, end: 20220210
  3. BACLOFEN [Suspect]
     Active Substance: BACLOFEN
     Route: 048
     Dates: start: 20220210, end: 20220210
  4. HERBALS\PANAX NOTOGINSENG ROOT EXTRACT [Concomitant]
     Active Substance: HERBALS\PANAX NOTOGINSENG ROOT EXTRACT
     Route: 041
     Dates: start: 20220208, end: 20220210
  5. METHYLCOBALAMIN [Concomitant]
     Active Substance: METHYLCOBALAMIN
     Route: 048
     Dates: start: 20220208, end: 20220210

REACTIONS (2)
  - Cardiac discomfort [Recovering/Resolving]
  - Dizziness [Recovering/Resolving]

NARRATIVE: CASE EVENT DATE: 20220210
